FAERS Safety Report 6671691-X (Version None)
Quarter: 2010Q2

REPORT INFORMATION
  Report Type: 
  Country: None (occurrence: None)
  Receive Date: 20100407
  Receipt Date: 20100325
  Transmission Date: 20101027
  Serious: Yes (Other)
  Sender: FDA-Public Use
  Company Number: PHHO2010US05125

PATIENT
  Age: 40 Year
  Sex: Female

DRUGS (1)
  1. ZOLEDRONATE T29581+SOLINF [Suspect]
     Indication: BREAST CANCER
     Dosage: UNK
     Route: 042
     Dates: start: 20071201

REACTIONS (2)
  - LOWER LIMB FRACTURE [None]
  - STRESS FRACTURE [None]
